FAERS Safety Report 16295243 (Version 1)
Quarter: 2019Q2

REPORT INFORMATION
  Report Type: Spontaneous
  Country: US (occurrence: US)
  Receive Date: 20190509
  Receipt Date: 20190509
  Transmission Date: 20190711
  Serious: No
  Sender: FDA-Public Use
  Company Number: US-ROCHE-2179987

PATIENT
  Sex: Female

DRUGS (13)
  1. PREDNISONE. [Concomitant]
     Active Substance: PREDNISONE
     Route: 065
  2. LEVOTHYROXIN [Concomitant]
     Active Substance: LEVOTHYROXINE
     Route: 065
  3. ATENOLOL. [Concomitant]
     Active Substance: ATENOLOL
     Route: 065
  4. OMEPRAZOLE. [Concomitant]
     Active Substance: OMEPRAZOLE
     Route: 065
  5. ASPIR-LOW [Concomitant]
     Active Substance: ASPIRIN
     Route: 065
  6. LEVEMIR [Concomitant]
     Active Substance: INSULIN DETEMIR
     Route: 065
  7. NIFEDIPINE. [Concomitant]
     Active Substance: NIFEDIPINE
     Route: 065
  8. PIOGLITAZONE. [Concomitant]
     Active Substance: PIOGLITAZONE
     Route: 065
  9. RANITIDINE HCL [Concomitant]
     Active Substance: RANITIDINE HYDROCHLORIDE
     Route: 065
  10. ESBRIET [Suspect]
     Active Substance: PIRFENIDONE
     Indication: PULMONARY FIBROSIS
     Dosage: TAKE 1 TABLET (801 MG) BY MOUTH THREE TIMES A DAY; ONGOING: UNKNOWN
     Route: 048
  11. PREVACID [Concomitant]
     Active Substance: LANSOPRAZOLE
     Route: 065
  12. SERTRALINE HCL [Concomitant]
     Active Substance: SERTRALINE HYDROCHLORIDE
     Route: 065
  13. FUROSEMIDE. [Concomitant]
     Active Substance: FUROSEMIDE
     Route: 065

REACTIONS (2)
  - Abdominal pain [Not Recovered/Not Resolved]
  - Diarrhoea [Not Recovered/Not Resolved]
